FAERS Safety Report 8782775 (Version 1)
Quarter: 2012Q4

REPORT INFORMATION
  Report Type: 
  Country: CA (occurrence: CA)
  Receive Date: 20120913
  Receipt Date: 20120913
  Transmission Date: 20130627
  Serious: Yes (Hospitalization)
  Sender: FDA-Public Use
  Company Number: CA-GLAXOSMITHKLINE-A0954412A

PATIENT
  Age: 51 Year
  Sex: Female

DRUGS (12)
  1. VOTRIENT [Suspect]
     Indication: RENAL CANCER METASTATIC
     Dosage: 400MG Twice per day
     Route: 048
     Dates: start: 20110616
  2. FUROSEMIDE [Concomitant]
     Dosage: 800MG Twice per day
     Route: 065
  3. DIGOXIN [Concomitant]
     Dosage: .0625MG Per day
     Route: 065
  4. CARVEDILOL [Concomitant]
     Dosage: 6.25MG Per day
     Route: 065
  5. SPIRONOLACTONE [Concomitant]
     Dosage: 25MG Per day
     Route: 065
  6. ZAROXOLYN [Concomitant]
     Dosage: 2.5MG Three times per week
     Route: 065
  7. ALTACE [Concomitant]
     Dosage: 2.5MG Per day
     Route: 065
  8. SIMVASTATIN [Concomitant]
     Dosage: 40MG Per day
     Route: 065
  9. AMIODARONE [Concomitant]
     Dosage: 200MG Per day
     Route: 065
  10. WARFARIN [Concomitant]
     Dosage: 2.5MG Per day
     Route: 065
  11. SYNTHROID [Concomitant]
     Dosage: .075MG Per day
     Route: 065
  12. ATIVAN [Concomitant]
     Dosage: 1MG At night
     Route: 065

REACTIONS (4)
  - Chest pain [Recovered/Resolved]
  - Hospitalisation [Not Recovered/Not Resolved]
  - Drug ineffective [Not Recovered/Not Resolved]
  - Malaise [Not Recovered/Not Resolved]
